FAERS Safety Report 4331415-8 (Version None)
Quarter: 2004Q1

REPORT INFORMATION
  Report Type: 
  Country: None (occurrence: None)
  Receive Date: 20040331
  Receipt Date: 20040319
  Transmission Date: 20041129
  Serious: Yes (Death)
  Sender: FDA-Public Use
  Company Number: JP-JNJFOC-20040305736

PATIENT
  Age: 78 Year
  Sex: Female

DRUGS (9)
  1. FENTANYL [Suspect]
     Indication: CANCER PAIN
     Dosage: SEE IMAGE
     Route: 062
     Dates: start: 20030724, end: 20030726
  2. FENTANYL [Suspect]
     Indication: CANCER PAIN
     Dosage: SEE IMAGE
     Route: 062
     Dates: start: 20030727, end: 20030730
  3. FENTANYL [Suspect]
     Indication: CANCER PAIN
     Dosage: SEE IMAGE
     Route: 062
     Dates: start: 20030731, end: 20030802
  4. FENTANYL [Suspect]
     Indication: CANCER PAIN
     Dosage: SEE IMAGE
     Route: 062
     Dates: start: 20030803, end: 20030812
  5. MAGNESIUM OXIDE (MAGNESIUM OXIDE) UNSPECIFIED [Concomitant]
  6. METOCLOPRAMIDE (METOCLOPRAMIDE) UNSPECIFIED [Concomitant]
  7. LORMETAZEPAM (LORMETAZEPAM) UNSPECIFIED [Concomitant]
  8. MORPHINE [Concomitant]
  9. MORPHINE SULFATE (MORPHINE SULFATE) UNSPECIFIED [Concomitant]

REACTIONS (1)
  - DEATH [None]
